FAERS Safety Report 7024565-9 (Version None)
Quarter: 2010Q4

REPORT INFORMATION
  Report Type: 
  Country: None (occurrence: None)
  Receive Date: 20101001
  Receipt Date: 20100924
  Transmission Date: 20110411
  Serious: Yes (Other)
  Sender: FDA-Public Use
  Company Number: JP-PFIZER INC-2010114439

PATIENT
  Age: 75 Year
  Sex: Female

DRUGS (2)
  1. CADUET [Suspect]
     Indication: HYPERTENSION
     Dosage: UNK
     Route: 048
     Dates: start: 20100527, end: 20100904
  2. CADUET [Suspect]
     Indication: HYPERCHOLESTEROLAEMIA

REACTIONS (1)
  - DRUG ERUPTION [None]
